FAERS Safety Report 11619004 (Version 1)
Quarter: 2015Q4

REPORT INFORMATION
  Report Type: Spontaneous
  Country: US (occurrence: US)
  Receive Date: 20151012
  Receipt Date: 20151012
  Transmission Date: 20160304
  Serious: Yes (Other)
  Sender: FDA-Public Use
  Company Number: PHEH2015US019787

PATIENT

DRUGS (1)
  1. ZYKADIA [Suspect]
     Active Substance: CERITINIB
     Indication: LUNG ADENOCARCINOMA
     Route: 065

REACTIONS (2)
  - Polycythaemia vera [Unknown]
  - Janus kinase 2 mutation [Unknown]
